FAERS Safety Report 6129724-5 (Version None)
Quarter: 2009Q1

REPORT INFORMATION
  Report Type: 
  Country: None (occurrence: None)
  Receive Date: 20090324
  Receipt Date: 20090316
  Transmission Date: 20090719
  Serious: Yes (Congenital Anomaly)
  Sender: FDA-Public Use
  Company Number: A0758176A

PATIENT
  Sex: Male

DRUGS (7)
  1. PAXIL CR [Suspect]
     Indication: DEPRESSION
     Dosage: 25MG PER DAY
     Dates: start: 20070601, end: 20080101
  2. PAROXETINE HYDROCHLORIDE [Suspect]
     Indication: DEPRESSION
     Dosage: 25MG PER DAY
     Dates: start: 20070601, end: 20080101
  3. VITAMIN TAB [Concomitant]
  4. VALTREX [Concomitant]
  5. IRON [Concomitant]
  6. ACYCLOVIR [Concomitant]
  7. PROZAC [Concomitant]
     Dates: start: 20050101, end: 20080101

REACTIONS (2)
  - CRANIOSYNOSTOSIS [None]
  - DRUG EXPOSURE DURING PREGNANCY [None]
